FAERS Safety Report 7239990-0 (Version None)
Quarter: 2011Q1

REPORT INFORMATION
  Report Type: 
  Country: None (occurrence: None)
  Receive Date: 20110124
  Receipt Date: 20110118
  Transmission Date: 20110831
  Serious: No
  Sender: FDA-Public Use
  Company Number: US-BIOGENIDEC-2010BI040113

PATIENT
  Age: 38 Year
  Sex: Female

DRUGS (1)
  1. TYSABRI [Suspect]
     Indication: MULTIPLE SCLEROSIS
     Route: 042
     Dates: start: 20081107

REACTIONS (6)
  - SKIN LESION [None]
  - CONFUSIONAL STATE [None]
  - MEMORY IMPAIRMENT [None]
  - STAPHYLOCOCCAL SKIN INFECTION [None]
  - SYSTEMIC MYCOSIS [None]
  - PRURITUS [None]
